FAERS Safety Report 5993602-2 (Version None)
Quarter: 2008Q4

REPORT INFORMATION
  Report Type: 
  Country: None (occurrence: None)
  Receive Date: 20081204
  Receipt Date: 20070314
  Transmission Date: 20090506
  Serious: Yes (Other)
  Sender: FDA-Public Use
  Company Number: THYM-11361

PATIENT
  Age: 46 Year
  Sex: Female

DRUGS (8)
  1. THYMOGLOBULIN [Suspect]
     Indication: DRUG USE FOR UNKNOWN INDICATION
     Dosage: 75 MG, QD, INTRAVENOUS
     Route: 042
     Dates: start: 20070313
  2. MYCOPHENOLATE MOFETIL [Concomitant]
  3. TACROLIMUS [Concomitant]
  4. CIPRO [Concomitant]
  5. VANCOMYCIN [Concomitant]
  6. METHYLPREDNISOLONE 16MG TAB [Concomitant]
  7. BENADRYL [Concomitant]
  8. ACETAMINOPHEN [Concomitant]

REACTIONS (1)
  - SINUS TACHYCARDIA [None]
